FAERS Safety Report 13194619 (Version 9)
Quarter: 2018Q2

REPORT INFORMATION
  Report Type: Report from Study
  Country: None (occurrence: DE)
  Receive Date: 20170207
  Receipt Date: 20180423
  Transmission Date: 20180711
  Serious: Yes (Hospitalization)
  Sender: FDA-Public Use
  Company Number: DE-ABBVIE-17P-062-1864554-00

PATIENT
  Age: 63 Year
  Sex: Female
  Weight: 92 kg

DRUGS (2)
  1. HUMIRA [Suspect]
     Active Substance: ADALIMUMAB
     Indication: PSORIATIC ARTHROPATHY
     Route: 058
     Dates: start: 20160803, end: 20170707
  2. FRAXIPARIN [Concomitant]
     Active Substance: NADROPARIN CALCIUM
     Indication: THROMBOSIS PROPHYLAXIS
     Dates: start: 201702

REACTIONS (20)
  - Post procedural complication [Recovered/Resolved]
  - Ovarian cancer stage III [Recovered/Resolved]
  - Dyspnoea [Recovering/Resolving]
  - Nausea [Recovered/Resolved]
  - Oxygen saturation decreased [Recovering/Resolving]
  - Vomiting [Recovered/Resolved]
  - Hepatic cyst [Unknown]
  - Uterine leiomyoma [Unknown]
  - Diverticulum intestinal [Unknown]
  - Pelvic fluid collection [Unknown]
  - Uterine neoplasm [Recovered/Resolved]
  - Uterine neoplasm [Recovered/Resolved]
  - Constipation [Recovered/Resolved]
  - Aortic arteriosclerosis [Unknown]
  - Anaemia [Recovered/Resolved]
  - Pleural effusion [Recovered/Resolved]
  - Malignant peritoneal neoplasm [Unknown]
  - Spinal osteoarthritis [Unknown]
  - Neuropathy peripheral [Unknown]
  - Hepatic steatosis [Unknown]

NARRATIVE: CASE EVENT DATE: 20170113
